FAERS Safety Report 17250617 (Version 1)
Quarter: 2020Q1

REPORT INFORMATION
  Report Type: Spontaneous
  Country: FI (occurrence: FI)
  Receive Date: 20200109
  Receipt Date: 20200109
  Transmission Date: 20200409
  Serious: Yes (Other)
  Sender: FDA-Public Use
  Company Number: FI-ALKEM LABORATORIES LIMITED-IT-ALKEM-2019-08779

PATIENT
  Age: 48 Year
  Sex: Female

DRUGS (2)
  1. ITRACONAZOLE. [Suspect]
     Active Substance: ITRACONAZOLE
     Indication: VULVOVAGINAL MYCOTIC INFECTION
     Dosage: 100 MILLIGRAM, BID
     Route: 048
  2. GLUCOSAMINE SULFATE [Concomitant]
     Active Substance: GLUCOSAMINE SULFATE
     Indication: OSTEOARTHRITIS
     Dosage: UNK
     Route: 065

REACTIONS (3)
  - Stevens-Johnson syndrome [Unknown]
  - Erythema multiforme [Unknown]
  - Toxic epidermal necrolysis [Unknown]
